FAERS Safety Report 4352317-7 (Version None)
Quarter: 2004Q2

REPORT INFORMATION
  Report Type: 
  Country: None (occurrence: None)
  Receive Date: 20040430
  Receipt Date: 20031112
  Transmission Date: 20050107
  Serious: Yes (Hospitalization)
  Sender: FDA-Public Use
  Company Number: 22526 (0)

PATIENT
  Age: 45 Year
  Sex: Female

DRUGS (1)
  1. ALDARA [Suspect]
     Indication: SKIN PAPILLOMA
     Dosage: TOPICAL
     Route: 061
     Dates: start: 20030922, end: 20031010

REACTIONS (1)
  - THROMBOCYTOPENIA [None]
